FAERS Safety Report 8289554-5 (Version None)
Quarter: 2012Q2

REPORT INFORMATION
  Report Type: 
  Country: None (occurrence: None)
  Receive Date: 20120417
  Receipt Date: 20120410
  Transmission Date: 20120825
  Serious: Yes (Life-Threatening, Hospitalization, Other)
  Sender: FDA-Public Use
  Company Number: JP-BRISTOL-MYERS SQUIBB COMPANY-16231631

PATIENT
  Age: 26 Year
  Sex: Female
  Weight: 60 kg

DRUGS (9)
  1. FLUNITRAZEPAM [Concomitant]
  2. ABILIFY [Suspect]
     Indication: SCHIZOPHRENIA
     Dosage: 31MAY-9JUN=10D,10JUN-31OCT=144D,24MG1NOV-3NOV=3D,18MG4NOV-10NOV=7D,12MG11NOV-27NOV=17D
     Route: 048
     Dates: start: 20110531, end: 20110609
  3. ABILIFY [Suspect]
     Route: 048
     Dates: start: 20111101, end: 20111127
  4. ARIPIPRAZOLE [Suspect]
     Indication: SCHIZOPHRENIA
     Route: 030
     Dates: start: 20110824, end: 20111018
  5. AKINETON [Concomitant]
     Dosage: TAB
     Dates: start: 20111107
  6. BLINDED: PLACEBO [Suspect]
     Indication: SCHIZOPHRENIA
     Dates: start: 20110824, end: 20111018
  7. RISPERDAL CONSTA [Concomitant]
     Dosage: TAB,ORAL SOLN 0.1% 25MG AS NEEDED 7NOV11-ONG,INCRE TO 37.5MG ON 22DEC11,50MG:05JAN12,2ML:01,02FEB12.
     Route: 048
     Dates: start: 20111104
  8. PALIPERIDONE [Concomitant]
  9. QUETIAPINE [Concomitant]

REACTIONS (5)
  - SPLENIC INJURY [None]
  - PNEUMOTHORAX [None]
  - SUICIDE ATTEMPT [None]
  - SCHIZOPHRENIA [None]
  - PELVIC FRACTURE [None]
